FAERS Safety Report 7635552-1 (Version None)
Quarter: 2011Q3

REPORT INFORMATION
  Report Type: 
  Country: None (occurrence: None)
  Receive Date: 20110726
  Receipt Date: 20110720
  Transmission Date: 20111222
  Serious: Yes (Death)
  Sender: FDA-Public Use
  Company Number: MX-SANOFI-AVENTIS-2011SA046615

PATIENT
  Age: 67 Year
  Sex: Male

DRUGS (2)
  1. FUROSEMIDE [Concomitant]
     Route: 048
     Dates: start: 20100101, end: 20100601
  2. LANTUS [Suspect]
     Indication: TYPE 2 DIABETES MELLITUS
     Route: 058
     Dates: start: 20100101, end: 20100601

REACTIONS (3)
  - CARDIAC DISORDER [None]
  - RENAL FAILURE CHRONIC [None]
  - HYPERGLYCAEMIA [None]
